FAERS Safety Report 9122358 (Version 1)
Quarter: 2013Q1

REPORT INFORMATION
  Report Type: Spontaneous
  Country: VN (occurrence: VN)
  Receive Date: 20130227
  Receipt Date: 20130227
  Transmission Date: 20140127
  Serious: Yes (Death, Other)
  Sender: FDA-Public Use
  Company Number: PHHY2013VN016685

PATIENT
  Age: 32 Year
  Sex: Female
  Weight: 45 kg

DRUGS (1)
  1. GLIVEC [Suspect]
     Indication: CHRONIC MYELOID LEUKAEMIA
     Dosage: 400 MG
     Route: 048
     Dates: start: 20110511, end: 20130119

REACTIONS (4)
  - Cerebral haemorrhage [Fatal]
  - Chronic myeloid leukaemia transformation [Fatal]
  - Coma [Unknown]
  - Coagulopathy [Unknown]
